FAERS Safety Report 7074224-1 (Version None)
Quarter: 2010Q4

REPORT INFORMATION
  Report Type: 
  Country: None (occurrence: None)
  Receive Date: 20101029
  Receipt Date: 20101020
  Transmission Date: 20110411
  Serious: Yes (Other)
  Sender: FDA-Public Use
  Company Number: PT-ROCHE-735258

PATIENT
  Age: 67 Year
  Sex: Male

DRUGS (1)
  1. CAPECITABINE [Suspect]
     Dosage: FOR 2 WEEKS FOLLOWED BY ONE WEEK OF REST PERIOD
     Route: 048

REACTIONS (2)
  - ACTINIC KERATOSIS [None]
  - PALMAR-PLANTAR ERYTHRODYSAESTHESIA SYNDROME [None]
